FAERS Safety Report 19656454 (Version 1)
Quarter: 2021Q3

REPORT INFORMATION
  Report Type: Spontaneous
  Country: CA (occurrence: CA)
  Receive Date: 20210804
  Receipt Date: 20210804
  Transmission Date: 20211014
  Serious: Yes (Hospitalization, Other)
  Sender: FDA-Public Use
  Company Number: CA-AMGEN-CANSP2021115661

PATIENT
  Age: 57 Year
  Sex: Female

DRUGS (6)
  1. COVID?19 VACCINE [Concomitant]
     Dosage: UNK
     Route: 065
  2. COVERSYL [PERINDOPRIL ARGININE] [Concomitant]
     Active Substance: PERINDOPRIL ARGININE
     Indication: HYPERTENSION
     Dosage: UNK
     Route: 065
  3. ENBREL [Suspect]
     Active Substance: ETANERCEPT
     Dosage: UNK
     Route: 065
  4. POTASSIUM CITRATE. [Concomitant]
     Active Substance: POTASSIUM CITRATE
     Indication: NEPHROLITHIASIS
     Dosage: UNK
     Route: 065
  5. INDAPAMIDE. [Concomitant]
     Active Substance: INDAPAMIDE
     Indication: HYPERTENSION
     Dosage: UNK
     Route: 065
  6. ENBREL [Suspect]
     Active Substance: ETANERCEPT
     Indication: ARTHRITIS
     Dosage: UNK
     Route: 065

REACTIONS (13)
  - Rash vesicular [Recovering/Resolving]
  - Cold sweat [Recovering/Resolving]
  - Hyperhidrosis [Recovering/Resolving]
  - Feeling abnormal [Recovering/Resolving]
  - Rash [Recovering/Resolving]
  - Intentional dose omission [Unknown]
  - Beta haemolytic streptococcal infection [Unknown]
  - Pyrexia [Recovered/Resolved]
  - Rash erythematous [Recovering/Resolving]
  - Nephrolithiasis [Unknown]
  - Feeling of body temperature change [Recovering/Resolving]
  - Chills [Recovering/Resolving]
  - Rash pruritic [Recovering/Resolving]

NARRATIVE: CASE EVENT DATE: 20210723
